FAERS Safety Report 16335502 (Version 1)
Quarter: 2019Q2

REPORT INFORMATION
  Report Type: Spontaneous
  Country: CN (occurrence: CN)
  Receive Date: 20190521
  Receipt Date: 20190521
  Transmission Date: 20190711
  Serious: Yes (Other)
  Sender: FDA-Public Use
  Company Number: CN-LUPIN PHARMACEUTICALS INC.-2019-03016

PATIENT
  Age: 40 Year
  Sex: Female

DRUGS (5)
  1. LABETALOL [Concomitant]
     Active Substance: LABETALOL\LABETALOL HYDROCHLORIDE
     Indication: HYPERTENSION
     Dosage: 100 MILLIGRAM (EVERY 12 HOURS)
     Route: 065
  2. AMLODIPINE BESYLATE. [Suspect]
     Active Substance: AMLODIPINE BESYLATE
     Indication: HYPERTENSION
     Dosage: 2.5 MILLIGRAM
     Route: 048
  3. MAGNESIUM [Interacting]
     Active Substance: MAGNESIUM
     Dosage: 10 GRAM, QD (TRANSFUSED IN 10 HOURS)
     Route: 042
  4. AMLODIPINE BESYLATE. [Interacting]
     Active Substance: AMLODIPINE BESYLATE
     Dosage: 2.5 MILLIGRAM, BID
     Route: 048
  5. MAGNESIUM [Interacting]
     Active Substance: MAGNESIUM
     Indication: PRODUCT USED FOR UNKNOWN INDICATION
     Dosage: 2 GRAM (LOADING DOSE)
     Route: 042

REACTIONS (4)
  - Drug interaction [Unknown]
  - Drug level increased [Unknown]
  - Exposure during pregnancy [Unknown]
  - Neuromuscular blockade [Recovered/Resolved]
